FAERS Safety Report 13374871 (Version 1)
Quarter: 2017Q1

REPORT INFORMATION
  Report Type: Report from Study
  Country: US (occurrence: US)
  Receive Date: 20170327
  Receipt Date: 20170327
  Transmission Date: 20170429
  Serious: Yes (Other)
  Sender: FDA-Public Use
  Company Number: US-VIFOR (INTERNATIONAL) INC.-VIT-2017-02006

PATIENT
  Age: 67 Year
  Sex: Male

DRUGS (18)
  1. ACETYLSALICYLIC ACID [Concomitant]
     Active Substance: ASPIRIN
     Dates: start: 20170221
  2. LOSARTAN. [Concomitant]
     Active Substance: LOSARTAN
     Dates: start: 20170221
  3. METOPROLOL. [Concomitant]
     Active Substance: METOPROLOL
     Dates: start: 20170221
  4. RESTASSIS [Concomitant]
     Dates: start: 20170221
  5. SYNTHROID [Concomitant]
     Active Substance: LEVOTHYROXINE SODIUM
     Dates: start: 20170221
  6. PROCRIT [Concomitant]
     Active Substance: ERYTHROPOIETIN
     Dates: start: 20170221
  7. TRADJENTA [Concomitant]
     Active Substance: LINAGLIPTIN
  8. VELTASSA [Suspect]
     Active Substance: PATIROMER
     Indication: HYPERKALAEMIA
     Route: 048
     Dates: end: 201703
  9. OMEPRAZOLE. [Concomitant]
     Active Substance: OMEPRAZOLE
     Dates: start: 20170221
  10. PLAVIX [Concomitant]
     Active Substance: CLOPIDOGREL BISULFATE
     Dates: start: 20170221
  11. FERROUS SULFATE. [Concomitant]
     Active Substance: FERROUS SULFATE
     Dates: start: 20170221
  12. ACETYLSALICYLIC ACID [Concomitant]
     Active Substance: ASPIRIN
     Dates: start: 20170221
  13. LIVALO [Concomitant]
     Active Substance: PITAVASTATIN CALCIUM
     Dates: start: 20170221
  14. VITAMINS NOS [Concomitant]
     Active Substance: VITAMINS
     Dates: start: 20170221
  15. OMEGA-3 ACIDS [Concomitant]
     Active Substance: OMEGA-3 FATTY ACIDS
     Dates: start: 20170221
  16. POTASSIUM [Concomitant]
     Active Substance: POTASSIUM
     Dates: start: 20170221
  17. ERGOCALCIFEROL. [Concomitant]
     Active Substance: ERGOCALCIFEROL
     Dates: start: 20170221
  18. FENOFIBRATE. [Concomitant]
     Active Substance: FENOFIBRATE
     Dates: start: 20170221

REACTIONS (4)
  - Abdominal pain upper [Unknown]
  - Constipation [Unknown]
  - Abdominal discomfort [Unknown]
  - Haematochezia [Unknown]

NARRATIVE: CASE EVENT DATE: 201702
